FAERS Safety Report 11397590 (Version 4)
Quarter: 2016Q4

REPORT INFORMATION
  Report Type: Report from Study
  Country: CN (occurrence: CN)
  Receive Date: 20150819
  Receipt Date: 20161101
  Transmission Date: 20170206
  Serious: Yes (Other)
  Sender: FDA-Public Use
  Company Number: CN-BAXALTA-2015BAX027851

PATIENT
  Age: 3 Year
  Sex: Male
  Weight: 18 kg

DRUGS (3)
  1. ADVATE [Suspect]
     Active Substance: ANTIHEMOPHILIC FACTOR, HUMAN RECOMBINANT
     Indication: FACTOR VIII DEFICIENCY
     Dosage: 250 IU, ONCE OR TWICE A WEEK
     Route: 042
  2. ADVATE [Suspect]
     Active Substance: ANTIHEMOPHILIC FACTOR, HUMAN RECOMBINANT
     Indication: PROPHYLAXIS
  3. ADVATE [Suspect]
     Active Substance: ANTIHEMOPHILIC FACTOR, HUMAN RECOMBINANT
     Indication: PROPHYLAXIS

REACTIONS (5)
  - Fall [Unknown]
  - Eyelid injury [Unknown]
  - Haemorrhage [Unknown]
  - Haemorrhage subcutaneous [Recovered/Resolved]
  - Haemorrhage subcutaneous [Unknown]

NARRATIVE: CASE EVENT DATE: 20150520
